FAERS Safety Report 10524420 (Version 2)
Quarter: 2015Q1

REPORT INFORMATION
  Report Type: Spontaneous
  Country: US (occurrence: None)
  Receive Date: 20141015
  Receipt Date: 20150317
  Transmission Date: 20150720
  Serious: Yes (Hospitalization)
  Sender: FDA-Public Use
  Company Number: PR 1718

PATIENT
  Age: 49 Year
  Sex: Female
  Weight: 60 kg

DRUGS (3)
  1. POLYETHYLENE GLYCOL + PROPYLENE GLYCOL (SYSTANE) [Concomitant]
  2. TRAVOPROST (TRAVATAN) [Concomitant]
  3. COSOPT [Suspect]
     Active Substance: DORZOLAMIDE HYDROCHLORIDE\TIMOLOL MALEATE
     Indication: INTRAOCULAR PRESSURE INCREASED
     Dosage: 1 DROP ON LEFT EYE
     Route: 047
     Dates: start: 2011

REACTIONS (5)
  - Eyelid ptosis [None]
  - Thyroid neoplasm [None]
  - Expired product administered [None]
  - Photophobia [None]
  - Drug ineffective [None]

NARRATIVE: CASE EVENT DATE: 20141008
